FAERS Safety Report 9442842 (Version 1)
Quarter: 2013Q3

REPORT INFORMATION
  Report Type: Report from Study
  Country: US (occurrence: US)
  Receive Date: 20130806
  Receipt Date: 20130806
  Transmission Date: 20140515
  Serious: Yes (Hospitalization)
  Sender: FDA-Public Use
  Company Number: US-MPIJNJ-2013-05873

PATIENT
  Age: 11 Year
  Sex: Male
  Weight: 44 kg

DRUGS (8)
  1. VELCADE [Suspect]
     Indication: ACUTE MYELOID LEUKAEMIA
     Dosage: 1.3 MG/M2, UNK
     Route: 040
     Dates: start: 20130308, end: 20130628
  2. CYTARABINE [Suspect]
     Indication: ACUTE MYELOID LEUKAEMIA
     Dosage: 70 MG, UNK
     Route: 037
     Dates: start: 20130308
  3. CYTARABINE [Suspect]
     Dosage: 100 MG/M2, BID
     Route: 042
     Dates: start: 20130308
  4. CYTARABINE [Suspect]
     Dosage: 1000 MG/M2, BID
     Route: 042
     Dates: start: 20130621, end: 20130623
  5. DAUNORUBICIN HYDROCHLORIDE [Suspect]
     Indication: ACUTE MYELOID LEUKAEMIA
     Dosage: 50 MG/M2, UNK
     Route: 042
     Dates: start: 20130308, end: 20130420
  6. ETOPOSIDE [Suspect]
     Indication: ACUTE MYELOID LEUKAEMIA
     Dosage: 100 MG/M2, UNK
     Route: 042
     Dates: start: 20130308, end: 20130420
  7. ETOPOSIDE [Suspect]
     Dosage: 150 UNK, UNK
     Route: 042
  8. MITOXANTRONE HYDROCHLORIDE [Suspect]
     Indication: ACUTE MYELOID LEUKAEMIA
     Dosage: 12 MG/M2, UNK
     Route: 042
     Dates: start: 20130621, end: 20130625

REACTIONS (4)
  - Periorbital infection [Not Recovered/Not Resolved]
  - Bronchopulmonary aspergillosis [Not Recovered/Not Resolved]
  - Respiratory failure [Not Recovered/Not Resolved]
  - Pulmonary oedema [Not Recovered/Not Resolved]
